FAERS Safety Report 11422081 (Version 1)
Quarter: 2015Q3

REPORT INFORMATION
  Report Type: Report from Study
  Country: US (occurrence: None)
  Receive Date: 20150825
  Receipt Date: 20150825
  Transmission Date: 20151125
  Serious: Yes (Hospitalization)
  Sender: FDA-Public Use
  Company Number: KAD201508-002777

PATIENT
  Age: 50 Year
  Sex: Female
  Weight: 56.24 kg

DRUGS (4)
  1. LEVOTHYROXINE. [Concomitant]
     Active Substance: LEVOTHYROXINE
  2. METOPROLOL(METOPROLOL) [Suspect]
     Active Substance: METOPROLOL
     Route: 048
  3. RIBAVIRIN 200 MG TABLETS(RIBAVIRIN) [Suspect]
     Active Substance: RIBAVIRIN
     Indication: HEPATITIS C
     Dosage: 600 MG IN AM; 400 MG IN PM, ORAL
     Route: 048
     Dates: start: 2015
  4. VIEKIRA PAK [Suspect]
     Active Substance: DASABUVIR\OMBITASVIR\PARITAPREVIR\RITONAVIR
     Indication: HEPATITIS C
     Route: 048
     Dates: start: 20150802

REACTIONS (12)
  - Dyspnoea [None]
  - Arrhythmia [None]
  - Atrial flutter [None]
  - Diarrhoea [None]
  - Palpitations [None]
  - Tachycardia [None]
  - Atrial fibrillation [None]
  - Hypomagnesaemia [None]
  - Dehydration [None]
  - Cough [None]
  - Fatigue [None]
  - Drug ineffective [None]

NARRATIVE: CASE EVENT DATE: 20150810
